FAERS Safety Report 7283155-3 (Version None)
Quarter: 2011Q1

REPORT INFORMATION
  Report Type: 
  Country: None (occurrence: None)
  Receive Date: 20110204
  Receipt Date: 20110204
  Transmission Date: 20110831
  Serious: Yes (Hospitalization)
  Sender: FDA-Public Use
  Company Number: None

PATIENT
  Sex: Female
  Weight: 91.1 kg

DRUGS (1)
  1. NOLVADEX [Suspect]
     Dosage: 20 MG
     Dates: end: 20110203

REACTIONS (3)
  - HYPERLIPIDAEMIA [None]
  - NON-CARDIAC CHEST PAIN [None]
  - BRADYCARDIA [None]
